FAERS Safety Report 10733203 (Version 1)
Quarter: 2015Q1

REPORT INFORMATION
  Report Type: Spontaneous
  Country: NL (occurrence: None)
  Receive Date: 20150120
  Receipt Date: 20150120
  Transmission Date: 20150721
  Serious: Yes (Hospitalization, Other)
  Sender: FDA-Public Use
  Company Number: ADR-2015-00084

PATIENT
  Age: 21 Year
  Sex: Female

DRUGS (2)
  1. BACLOFEN (ORAL) [Suspect]
     Active Substance: BACLOFEN
     Indication: DRUG THERAPY
     Dosage: SEE B.5.
  2. GHB [Suspect]
     Active Substance: 4-HYDROXYBUTANOIC ACID
     Dosage: SEE B.5.?

REACTIONS (13)
  - Loss of consciousness [None]
  - Hyporeflexia [None]
  - Drug abuse [None]
  - Inappropriate schedule of drug administration [None]
  - Fall [None]
  - Apnoea [None]
  - Blood glucose decreased [None]
  - Drug dependence [None]
  - Bradypnoea [None]
  - Mydriasis [None]
  - Rhonchi [None]
  - Memory impairment [None]
  - Hypotonia [None]

NARRATIVE: CASE EVENT DATE: 20140823
